FAERS Safety Report 24995324 (Version 4)
Quarter: 2025Q4

REPORT INFORMATION
  Report Type: Report from Study
  Country: CN (occurrence: CN)
  Receive Date: 20250221
  Receipt Date: 20251107
  Transmission Date: 20260117
  Serious: No
  Sender: Vantive US Healthcare
  Company Number: CN-VANTIVE-2025VAN000829

PATIENT
  Age: 70 Year
  Sex: Male
  Weight: 72 kg

DRUGS (5)
  1. SODIUM CHLORIDE\SODIUM CITRATE, UNSPECIFIED FORM [Suspect]
     Active Substance: SODIUM CHLORIDE\SODIUM CITRATE, UNSPECIFIED FORM
     Indication: Septic shock
     Dosage: 1127 ML/H (PRE- DILUTION)
     Route: 042
     Dates: start: 20250111, end: 20250113
  2. DEXTROSE\LACTIC ACID\MAGNESIUM CL\POTASSIUM CL\SODIUM BICARBONATE\SODI [Suspect]
     Active Substance: DEXTROSE\LACTIC ACID\MAGNESIUM CHLORIDE\POTASSIUM CHLORIDE\SODIUM BICARBONATE\SODIUM CHLORIDE
     Indication: Septic shock
     Dosage: 600ML/H (POST- DILUTION), INTRAVENOUS INFUSION
     Route: 042
     Dates: start: 20250111, end: 20250113
  3. UNSPECIFIED INGREDIENT [Suspect]
     Active Substance: UNSPECIFIED INGREDIENT
     Route: 065
  4. IMIPENEM AND CILASTATIN SODIUM [Concomitant]
     Active Substance: CILASTATIN SODIUM\IMIPENEM
     Indication: Infection prophylaxis
     Dosage: 1 G, QD (ONCE A DAY)
     Route: 042
     Dates: start: 20250111, end: 20250111
  5. SODIUM CITRATE [Concomitant]
     Active Substance: SODIUM CITRATE
     Indication: Anticoagulant therapy
     Dosage: LOADING DOSE/FIRST DOSE WAS 1500 ML/H + AINTENANCE DOSE/STABLE DOSE WAS 1500 ML/H
     Route: 065
     Dates: start: 20250111, end: 20250113

REACTIONS (2)
  - Hypomagnesaemia [Not Recovered/Not Resolved]
  - Hypocalcaemia [Recovered/Resolved]

NARRATIVE: CASE EVENT DATE: 20250111
